FAERS Safety Report 22120332 (Version 1)
Quarter: 2023Q1

REPORT INFORMATION
  Report Type: Spontaneous
  Country: US (occurrence: None)
  Receive Date: 20230321
  Receipt Date: 20230321
  Transmission Date: 20230417
  Serious: No
  Sender: FDA-Public Use
  Company Number: US-ROCHE-3246815

PATIENT
  Age: 16 Year
  Sex: Female

DRUGS (8)
  1. EVRYSDI [Suspect]
     Active Substance: RISDIPLAM
     Indication: Muscular dystrophy
     Dosage: (STRENGTH: 0.75 MG/ML) 5 MG TAKEN DAILY BY MOUTH ;ONGOING: YES
     Route: 048
     Dates: start: 20221103
  2. EVRYSDI [Suspect]
     Active Substance: RISDIPLAM
  3. EVRYSDI [Suspect]
     Active Substance: RISDIPLAM
  4. EVRYSDI [Suspect]
     Active Substance: RISDIPLAM
  5. EVRYSDI [Suspect]
     Active Substance: RISDIPLAM
     Indication: Spinal muscular atrophy
  6. EVRYSDI [Suspect]
     Active Substance: RISDIPLAM
  7. EVRYSDI [Suspect]
     Active Substance: RISDIPLAM
  8. EVRYSDI [Suspect]
     Active Substance: RISDIPLAM

REACTIONS (2)
  - Chest pain [Recovered/Resolved]
  - Heart rate increased [Recovered/Resolved]

NARRATIVE: CASE EVENT DATE: 20221214
